FAERS Safety Report 8116944-3 (Version None)
Quarter: 2012Q1

REPORT INFORMATION
  Report Type: 
  Country: None (occurrence: None)
  Receive Date: 20120206
  Receipt Date: 20120202
  Transmission Date: 20120608
  Serious: No
  Sender: FDA-Public Use
  Company Number: US-PFIZER INC-2012030130

PATIENT
  Age: 47 Year
  Sex: Female
  Weight: 81.633 kg

DRUGS (2)
  1. CYMBALTA [Concomitant]
     Indication: FIBROMYALGIA
     Dosage: 60 MG, DAILY
  2. IBUPROFEN (ADVIL) [Suspect]
     Indication: TEMPOROMANDIBULAR JOINT SYNDROME
     Dosage: 200 MG, DAILY
     Route: 048

REACTIONS (4)
  - POOR QUALITY DRUG ADMINISTERED [None]
  - INFLUENZA LIKE ILLNESS [None]
  - MALAISE [None]
  - NAUSEA [None]
